FAERS Safety Report 5589618-0 (Version None)
Quarter: 2007Q4

REPORT INFORMATION
  Report Type: 
  Country: None (occurrence: None)
  Receive Date: 20071212
  Receipt Date: 20070720
  Transmission Date: 20080405
  Serious: Yes (Other)
  Sender: FDA-Public Use
  Company Number: USA-2007-0028401

PATIENT
  Age: 61 Year
  Sex: Male
  Weight: 65.8 kg

DRUGS (2)
  1. OXYCONTIN [Suspect]
     Indication: INTERVERTEBRAL DISC DEGENERATION
     Dosage: 20 MG, TID
     Dates: start: 20060801
  2. VICODIN [Concomitant]

REACTIONS (11)
  - ANOREXIA [None]
  - DIARRHOEA [None]
  - DRUG DEPENDENCE [None]
  - FEELING ABNORMAL [None]
  - MALAISE [None]
  - MUSCLE SPASMS [None]
  - PAIN [None]
  - REGURGITATION [None]
  - VOMITING [None]
  - WEIGHT DECREASED [None]
  - WITHDRAWAL SYNDROME [None]
